FAERS Safety Report 9735852 (Version 1)
Quarter: 2013Q4

REPORT INFORMATION
  Report Type: Spontaneous
  Country: US (occurrence: US)
  Receive Date: 20131206
  Receipt Date: 20131206
  Transmission Date: 20140711
  Serious: No
  Sender: FDA-Public Use
  Company Number: US-GILEAD-2009-0024024

PATIENT
  Sex: Female

DRUGS (19)
  1. LETAIRIS [Suspect]
     Indication: PULMONARY ARTERIAL HYPERTENSION
     Route: 048
     Dates: start: 20080521
  2. WARFARIN [Concomitant]
  3. LANTUS [Concomitant]
  4. CALCIUM [Concomitant]
  5. NEXIUM [Concomitant]
  6. ASPIRIN [Concomitant]
  7. LISINOPRIL [Concomitant]
  8. DILTIAZEM CD [Concomitant]
  9. BUMETANIDE [Concomitant]
  10. ISOSORBIDE [Concomitant]
  11. ZETIA [Concomitant]
  12. LEVOTHYROXINE [Concomitant]
  13. NIFEDICAL [Concomitant]
  14. GLIMEPIRIDE [Concomitant]
  15. FUROSEMIDE [Concomitant]
  16. METOPROLOL ER [Concomitant]
  17. LIPITOR [Concomitant]
  18. DIGOXIN [Concomitant]
  19. COZAAR [Concomitant]

REACTIONS (1)
  - Insomnia [Not Recovered/Not Resolved]
